FAERS Safety Report 6387253-8 (Version None)
Quarter: 2009Q3

REPORT INFORMATION
  Report Type: 
  Country: None (occurrence: None)
  Receive Date: 20090928
  Receipt Date: 20090916
  Transmission Date: 20100115
  Serious: Yes (Other)
  Sender: FDA-Public Use
  Company Number: GXKR2009US10348

PATIENT
  Age: 65 Year
  Sex: Female

DRUGS (10)
  1. OMEPRAZOLE [Suspect]
     Indication: DYSPEPSIA
     Dosage: 2.5 YEARS LATER,; 6 MONTHS LATER; 20 MG,; 40 MG,
  2. OMEPRAZOLE [Suspect]
     Indication: GASTROOESOPHAGEAL REFLUX DISEASE
     Dosage: 2.5 YEARS LATER,; 6 MONTHS LATER; 20 MG,; 40 MG,
  3. ATORVASTATIN CALCIUM [Concomitant]
  4. LISINOPRIL [Concomitant]
  5. ATENOLOL [Concomitant]
  6. HYDROCHLOROTHIAZIDE [Concomitant]
  7. LEVOTHYROXINE SODIUM [Concomitant]
  8. FAMOTIDINE [Concomitant]
  9. ANTIBIOTICS (NO INGREDIENTS/SUBSTANCES) [Concomitant]
  10. RABEPRAZOLE SODIUM [Concomitant]

REACTIONS (3)
  - COLITIS COLLAGENOUS [None]
  - COLITIS MICROSCOPIC [None]
  - DIVERTICULUM [None]
